FAERS Safety Report 16376867 (Version 1)
Quarter: 2019Q2

REPORT INFORMATION
  Report Type: Report from Study
  Country: US (occurrence: US)
  Receive Date: 20190531
  Receipt Date: 20190531
  Transmission Date: 20190711
  Serious: Yes (Hospitalization)
  Sender: FDA-Public Use
  Company Number: US-PFIZER INC-2019230715

PATIENT
  Age: 66 Year
  Sex: Female

DRUGS (12)
  1. GOCOVRI [Interacting]
     Active Substance: AMANTADINE
     Indication: DYSKINESIA
     Dosage: 274 MG, 1X/DAY (1X/DAY AT AT BEDTIME)
     Route: 048
     Dates: start: 20180106
  2. ROPINIROLE. [Concomitant]
     Active Substance: ROPINIROLE
     Dosage: UNK
  3. LISINOPRIL. [Concomitant]
     Active Substance: LISINOPRIL
     Dosage: UNK
  4. ENTACAPONE. [Concomitant]
     Active Substance: ENTACAPONE
     Dosage: UNK
  5. ESTRADIOL. [Concomitant]
     Active Substance: ESTRADIOL
     Dosage: UNK
  6. HYDROCODONE BITARTRATE AND ACETAMINOPHEN [Concomitant]
     Active Substance: ACETAMINOPHEN\HYDROCODONE BITARTRATE
     Dosage: UNK
  7. PROGESTERONE. [Concomitant]
     Active Substance: PROGESTERONE
     Dosage: UNK
  8. SINEMET [Concomitant]
     Active Substance: CARBIDOPA\LEVODOPA
     Dosage: UNK
  9. SERTRALINE [Concomitant]
     Active Substance: SERTRALINE HYDROCHLORIDE
     Dosage: UNK
  10. GABAPENTIN. [Suspect]
     Active Substance: GABAPENTIN
     Indication: PAIN
     Dosage: UNK
     Dates: end: 2019
  11. GOCOVRI [Interacting]
     Active Substance: AMANTADINE
     Indication: PARKINSON^S DISEASE
     Dosage: 137 MG, 1X/DAY (TAKEN ORALLY, ONCE DAILY AT BEDTIME)
     Route: 048
     Dates: start: 20180106
  12. ATENOLOL. [Concomitant]
     Active Substance: ATENOLOL
     Dosage: UNK

REACTIONS (7)
  - Condition aggravated [Unknown]
  - Gait inability [Unknown]
  - Product use in unapproved indication [Unknown]
  - Intervertebral disc protrusion [Unknown]
  - Drug interaction [Unknown]
  - Nerve compression [Unknown]
  - Off label use [Unknown]
